FAERS Safety Report 8311614-0 (Version None)
Quarter: 2012Q2

REPORT INFORMATION
  Report Type: 
  Country: None (occurrence: None)
  Receive Date: 20120425
  Receipt Date: 20120416
  Transmission Date: 20120825
  Serious: Yes (Other)
  Sender: FDA-Public Use
  Company Number: US-ASTRAZENECA-2012SE04180

PATIENT
  Age: 59 Year
  Sex: Male

DRUGS (1)
  1. NEXIUM [Suspect]
     Route: 048

REACTIONS (6)
  - COORDINATION ABNORMAL [None]
  - BRAIN INJURY [None]
  - WEST NILE VIRAL INFECTION [None]
  - NERVOUS SYSTEM DISORDER [None]
  - CONFUSIONAL STATE [None]
  - BALANCE DISORDER [None]
